FAERS Safety Report 10464086 (Version 2)
Quarter: 2014Q4

REPORT INFORMATION
  Report Type: Report from Study
  Country: JP (occurrence: JP)
  Receive Date: 20140919
  Receipt Date: 20141010
  Transmission Date: 20150528
  Serious: Yes (Hospitalization)
  Sender: FDA-Public Use
  Company Number: JP-AMGEN-JPNCT2014071861

PATIENT
  Sex: Male
  Weight: 73 kg

DRUGS (11)
  1. LEUPLIN [Concomitant]
     Active Substance: LEUPROLIDE ACETATE
     Dosage: UNK
     Route: 065
     Dates: start: 20120803, end: 20131022
  2. BENET [Concomitant]
     Active Substance: RISEDRONIC ACID
     Dosage: 17.5 MG, QD
     Route: 048
     Dates: start: 20120803, end: 20131021
  3. TAXOTERE [Concomitant]
     Active Substance: DOCETAXEL
     Dosage: UNK
     Route: 065
     Dates: start: 20140220, end: 20140619
  4. ODYNE [Concomitant]
     Active Substance: FLUTAMIDE
     Dosage: UNK
     Route: 065
     Dates: start: 20130716, end: 20131022
  5. PREDONINE [Concomitant]
     Active Substance: PREDNISOLONE\PREDNISOLONE ACETATE\PREDNISOLONE SODIUM SUCCINATE
     Dosage: UNK
     Route: 065
     Dates: start: 20140220
  6. DENOTAS [Concomitant]
     Active Substance: CALCIUM CARBONATE\CHOLECALCIFEROL\MAGNESIUM CARBONATE
     Dosage: 2 DF, QD
     Route: 048
     Dates: start: 20140206
  7. DENOSUMAB [Suspect]
     Active Substance: DENOSUMAB
     Indication: METASTASES TO BONE
     Dosage: 120 MG, UNK
     Route: 058
     Dates: start: 20140206
  8. DEGARELIX [Concomitant]
     Active Substance: DEGARELIX
     Dosage: UNK
     Route: 065
     Dates: start: 20140109
  9. TAKEPRON [Concomitant]
     Active Substance: LANSOPRAZOLE
     Dosage: 15 MG, QD
     Route: 048
     Dates: start: 20140220
  10. CASODEX [Concomitant]
     Active Substance: BICALUTAMIDE
     Dosage: UNK
     Route: 065
     Dates: start: 20120803, end: 20130715
  11. XTANDI [Concomitant]
     Active Substance: ENZALUTAMIDE
     Dosage: UNK
     Route: 065
     Dates: start: 20140703

REACTIONS (3)
  - Neutropenia [Recovered/Resolved]
  - Neutropenia [Recovered/Resolved]
  - Osteitis [Unknown]

NARRATIVE: CASE EVENT DATE: 20140226
